FAERS Safety Report 6270608-X (Version None)
Quarter: 2009Q3

REPORT INFORMATION
  Report Type: 
  Country: None (occurrence: None)
  Receive Date: 20090716
  Receipt Date: 20090706
  Transmission Date: 20100115
  Serious: Yes (Death)
  Sender: FDA-Public Use
  Company Number: US-PFIZER INC-2009212554

PATIENT
  Sex: Female

DRUGS (1)
  1. CAMPTOSAR [Suspect]
     Indication: COLON CANCER METASTATIC
     Dosage: 100 MG/M2, UNK
     Dates: start: 20090305

REACTIONS (2)
  - COLORECTAL CANCER METASTATIC [None]
  - DISEASE PROGRESSION [None]
